FAERS Safety Report 14565571 (Version 1)
Quarter: 2018Q1

REPORT INFORMATION
  Report Type: Spontaneous
  Country: SE (occurrence: SE)
  Receive Date: 20180223
  Receipt Date: 20180223
  Transmission Date: 20180509
  Serious: Yes (Disabling)
  Sender: FDA-Public Use
  Company Number: SE-AUROBINDO-AUR-APL-2018-009493

PATIENT
  Age: 75 Year
  Sex: Male
  Weight: 89 kg

DRUGS (5)
  1. FINASTERIDE. [Suspect]
     Active Substance: FINASTERIDE
     Indication: BENIGN PROSTATIC HYPERPLASIA
     Dosage: 5 MG, UNK
     Route: 065
     Dates: start: 20170518, end: 20171217
  2. METOPROLOL. [Concomitant]
     Active Substance: METOPROLOL
     Dosage: ()
     Dates: start: 20150401
  3. ATORVASTATIN [Concomitant]
     Active Substance: ATORVASTATIN
     Dosage: ()
     Dates: start: 20150401
  4. TROMBYL [Concomitant]
     Active Substance: ASPIRIN
     Dosage: ()
     Dates: start: 20150401
  5. PANTOPRAZOLE [Concomitant]
     Active Substance: PANTOPRAZOLE
     Dosage: ()
     Dates: start: 20121210

REACTIONS (1)
  - Dysphonia [Recovered/Resolved with Sequelae]

NARRATIVE: CASE EVENT DATE: 20170910
